FAERS Safety Report 13172542 (Version 2)
Quarter: 2017Q1

REPORT INFORMATION
  Report Type: Report from Study
  Country: US (occurrence: US)
  Receive Date: 20170131
  Receipt Date: 20170209
  Transmission Date: 20170428
  Serious: Yes (Hospitalization)
  Sender: FDA-Public Use
  Company Number: US-ACTELION-A-NJ2015-125405

PATIENT
  Age: 2 Year
  Sex: Male

DRUGS (3)
  1. TRACLEER [Suspect]
     Active Substance: BOSENTAN
     Indication: PULMONARY HYPERTENSION
     Dosage: 15.625 MG, UNK
     Route: 048
     Dates: start: 20150817
  2. TRACLEER [Suspect]
     Active Substance: BOSENTAN
     Dosage: 62.5 MG, BID
     Route: 048
     Dates: start: 20150817
  3. SILDENAFIL. [Concomitant]
     Active Substance: SILDENAFIL

REACTIONS (8)
  - Croup infectious [Unknown]
  - Respiratory tract congestion [Unknown]
  - Cough [Unknown]
  - Disease complication [Unknown]
  - Pulmonary hypertension [Unknown]
  - Respiratory syncytial virus infection [Unknown]
  - Nasopharyngitis [Unknown]
  - Pyrexia [Unknown]

NARRATIVE: CASE EVENT DATE: 20151003
